FAERS Safety Report 5773905-7 (Version None)
Quarter: 2008Q2

REPORT INFORMATION
  Report Type: 
  Country: None (occurrence: None)
  Receive Date: 20080616
  Receipt Date: 20080605
  Transmission Date: 20081010
  Serious: Yes (Other)
  Sender: FDA-Public Use
  Company Number: B0521431A

PATIENT
  Age: 29 Year
  Sex: Male
  Weight: 83 kg

DRUGS (1)
  1. AVAMYS [Suspect]
     Indication: RHINITIS
     Dosage: 4PUFF AS REQUIRED
     Route: 045
     Dates: start: 20080503, end: 20080510

REACTIONS (1)
  - ANOSMIA [None]
